FAERS Safety Report 6044099-8 (Version None)
Quarter: 2009Q1

REPORT INFORMATION
  Report Type: 
  Country: None (occurrence: None)
  Receive Date: 20090120
  Receipt Date: 20090115
  Transmission Date: 20090719
  Serious: Yes (Other)
  Sender: FDA-Public Use
  Company Number: B0554881A

PATIENT
  Age: 79 Year
  Sex: Male

DRUGS (5)
  1. AUGMENTIN '125' [Suspect]
     Indication: TOOTH ABSCESS
     Route: 048
     Dates: start: 20081121, end: 20081126
  2. LANOXIN [Concomitant]
     Indication: ATRIAL FIBRILLATION
     Route: 048
     Dates: start: 20081020, end: 20081126
  3. NITRODERM [Concomitant]
     Route: 062
     Dates: start: 20080101, end: 20081126
  4. TALOFEN [Concomitant]
     Indication: SEDATION
     Route: 048
     Dates: start: 20081020, end: 20081126
  5. SINVACOR [Concomitant]
     Dosage: 20MG PER DAY
     Route: 048
     Dates: start: 20081020, end: 20081126

REACTIONS (2)
  - ANGIOEDEMA [None]
  - PRURIGO [None]
